FAERS Safety Report 4940149-8 (Version None)
Quarter: 2006Q1

REPORT INFORMATION
  Report Type: 
  Country: None (occurrence: None)
  Receive Date: 20060310
  Receipt Date: 20060301
  Transmission Date: 20060701
  Serious: Yes (Other)
  Sender: FDA-Public Use
  Company Number: JP-ROCHE-438970

PATIENT

DRUGS (2)
  1. TAMIFLU [Suspect]
     Indication: INFLUENZA
     Route: 048
     Dates: start: 20060214
  2. TAMIFLU [Suspect]
     Route: 048
     Dates: end: 20060216

REACTIONS (1)
  - HYPOTHERMIA [None]
